FAERS Safety Report 23810792 (Version 1)
Quarter: 2024Q2

REPORT INFORMATION
  Report Type: Spontaneous
  Country: PL (occurrence: PL)
  Receive Date: 20240502
  Receipt Date: 20240502
  Transmission Date: 20240716
  Serious: Yes (Other)
  Sender: FDA-Public Use
  Company Number: None

PATIENT
  Age: 81 Year
  Sex: Male
  Weight: 73 kg

DRUGS (1)
  1. LOTEMAX [Suspect]
     Active Substance: LOTEPREDNOL ETABONATE
     Indication: Eye inflammation
     Dosage: THE DRUG HAS BEEN USED FOR 2 MONTHS; THERAPY ONGOING
     Route: 050

REACTIONS (1)
  - Visual impairment [Not Recovered/Not Resolved]
